FAERS Safety Report 6515098 (Version 2)
Quarter: 2013Q1

REPORT INFORMATION
  Report Type: Spontaneous
  Country: GB (occurrence: None)
  Receive Date: 20071213
  Receipt Date: 20121226
  Transmission Date: 20140127
  Serious: Yes (Hospitalization)
  Sender: FDA-Public Use
  Company Number: 2006EU000241

PATIENT
  Age: 53 Year
  Sex: Female

DRUGS (3)
  1. TACROLIMUS [Suspect]
     Indication: RENAL TRANSPLANT
     Dosage: 16 MG, UID/QD, ORAL
     Route: 048
     Dates: start: 20050308
  2. MYCOPHENOLATE MOFETIL [Suspect]
     Indication: RENAL TRANSPLANT
     Dosage: 1 G, BID, ORAL
     Route: 048
     Dates: start: 20040114, end: 20050308
  3. PREDNISOLONE [Suspect]
     Indication: RENAL TRANSPLANT
     Dosage: 20 MG, UID/QD, ORAL
     Route: 048
     Dates: start: 20040116

REACTIONS (3)
  - Colitis [None]
  - Acute prerenal failure [None]
  - Complications of transplanted kidney [None]
